FAERS Safety Report 7638729-4 (Version None)
Quarter: 2011Q3

REPORT INFORMATION
  Report Type: 
  Country: None (occurrence: None)
  Receive Date: 20110727
  Receipt Date: 20110715
  Transmission Date: 20111222
  Serious: Yes (Death, Hospitalization, Other)
  Sender: FDA-Public Use
  Company Number: GR-SANOFI-AVENTIS-2011SA045394

PATIENT
  Sex: Female

DRUGS (8)
  1. OXALIPLATIN [Suspect]
     Route: 065
  2. GEFITINIB [Suspect]
     Indication: OVARIAN CANCER
     Dosage: 250 MG ONCE DAILY THROUGHOUT THE TRIAL
     Route: 065
  3. OXALIPLATIN [Suspect]
     Route: 065
  4. VINORELBINE TARTRATE [Suspect]
     Route: 065
  5. OXALIPLATIN [Suspect]
     Indication: OVARIAN CANCER
     Dosage: 50 MG/M2 ADMINISTERED IV AS A 4 HR INFUSION ON DAY 1 + 8 OF EACH 3 WEEK CYCLE
     Route: 042
  6. ONDANSETRON [Concomitant]
     Dosage: 16 MG AS A SHORT INTRAVENOUS INFUSION BEFORE THE ADMINISTRATION OF CHEMOTHERAPY
     Route: 042
  7. VINORELBINE TARTRATE [Suspect]
     Indication: OVARIAN CANCER
     Dosage: 25 MG/M2 VINORELBINE ADMINISTERED AS A 60 MIN IV INFUSION
     Route: 042
  8. VINORELBINE TARTRATE [Suspect]
     Route: 065

REACTIONS (18)
  - PULMONARY EMBOLISM [None]
  - DIARRHOEA [None]
  - SEPTIC SHOCK [None]
  - FEBRILE NEUTROPENIA [None]
  - NEUTROPENIA [None]
  - INFECTION [None]
  - ALANINE AMINOTRANSFERASE INCREASED [None]
  - ANAEMIA [None]
  - THROMBOCYTOPENIA [None]
  - NAUSEA [None]
  - VOMITING [None]
  - INFECTIOUS PERITONITIS [None]
  - DISEASE PROGRESSION [None]
  - SUBCUTANEOUS ABSCESS [None]
  - INTESTINAL OBSTRUCTION [None]
  - LEUKOPENIA [None]
  - HYPERSENSITIVITY [None]
  - DEEP VEIN THROMBOSIS [None]
